FAERS Safety Report 19475185 (Version 1)
Quarter: 2021Q2

REPORT INFORMATION
  Report Type: Spontaneous
  Country: IT (occurrence: IT)
  Receive Date: 20210630
  Receipt Date: 20210630
  Transmission Date: 20210717
  Serious: Yes (Hospitalization)
  Sender: FDA-Public Use
  Company Number: IT-ROCHE-2857001

PATIENT
  Age: 75 Year
  Sex: Female

DRUGS (3)
  1. VINORELBINE TARTRATE. [Suspect]
     Active Substance: VINORELBINE TARTRATE
     Indication: METAPLASTIC BREAST CARCINOMA
     Route: 042
     Dates: start: 20210401
  2. ONTRUZANT [Suspect]
     Active Substance: TRASTUZUMAB-DTTB
     Indication: METAPLASTIC BREAST CARCINOMA
     Route: 042
     Dates: start: 20210401
  3. PERJETA [Suspect]
     Active Substance: PERTUZUMAB
     Indication: METAPLASTIC BREAST CARCINOMA
     Route: 042
     Dates: start: 20210401

REACTIONS (4)
  - Gastrointestinal necrosis [Recovering/Resolving]
  - Off label use [Unknown]
  - Rectal haemorrhage [Recovering/Resolving]
  - Mucosal necrosis [Recovering/Resolving]

NARRATIVE: CASE EVENT DATE: 20210528
